FAERS Safety Report 26143524 (Version 2)
Quarter: 2025Q4

REPORT INFORMATION
  Report Type: Spontaneous
  Country: US (occurrence: US)
  Receive Date: 20251211
  Receipt Date: 20251216
  Transmission Date: 20260119
  Serious: Yes (Hospitalization, Disabling, Other)
  Sender: AUROBINDO
  Company Number: US-AUROBINDO-AUR-APL-2025-061179

PATIENT
  Age: 75 Year
  Sex: Female

DRUGS (5)
  1. FLUOROURACIL [Suspect]
     Active Substance: FLUOROURACIL
     Indication: Anal cancer stage III
     Dosage: 4000 MILLIGRAM/SQ. METER
     Route: 065
  2. MITOMYCIN C [Suspect]
     Active Substance: MITOMYCIN
     Indication: Anal cancer stage III
     Dosage: 8 MILLIGRAM/SQ. METER
     Route: 065
  3. MITOMYCIN C [Suspect]
     Active Substance: MITOMYCIN
     Indication: Anal squamous cell carcinoma
  4. FLUOROURACIL [Suspect]
     Active Substance: FLUOROURACIL
     Indication: Anal cancer stage III
     Dosage: 2000 MG/M2,  CONTINUOUS INFUSION OVER 96 HOURS FOR 2 CYCLES
     Route: 065
  5. FLUOROURACIL [Suspect]
     Active Substance: FLUOROURACIL
     Indication: Anal squamous cell carcinoma

REACTIONS (14)
  - Stomatitis [Recovering/Resolving]
  - Neutropenia [Unknown]
  - Diarrhoea [Unknown]
  - Nausea [Unknown]
  - Vomiting [Unknown]
  - Dyspnoea [Unknown]
  - Productive cough [Unknown]
  - Malnutrition [Unknown]
  - Respiratory tract congestion [Unknown]
  - Urinary tract infection bacterial [Unknown]
  - Mucosal inflammation [Unknown]
  - Toxicity to various agents [Unknown]
  - Asthenia [Unknown]
  - Pallor [Unknown]
